FAERS Safety Report 7585531-8 (Version None)
Quarter: 2011Q2

REPORT INFORMATION
  Report Type: 
  Country: None (occurrence: None)
  Receive Date: 20110624
  Receipt Date: 20110610
  Transmission Date: 20111010
  Serious: Yes (Hospitalization, Other)
  Sender: FDA-Public Use
  Company Number: 1000021670

PATIENT
  Age: 41 Year
  Sex: Male

DRUGS (3)
  1. SYMICORT (BUDESONIDE, FOROMTEROL FUMARATE) (BUDESONIDE, FORMOTEROL FUM [Concomitant]
  2. AFONILUM (THEOPHYLLINE) [Concomitant]
  3. ROFLUMILAST (ROFLUMILAST) (500 MICROGRAM, TABLETS) [Suspect]
     Indication: CHRONIC OBSTRUCTIVE PULMONARY DISEASE
     Dosage: 500 MCG (500 MCG, 1 IN 1 D), ORAL
     Route: 048
     Dates: start: 20110428, end: 20110518

REACTIONS (2)
  - PNEUMOTHORAX [None]
  - BODY TEMPERATURE DECREASED [None]
